FAERS Safety Report 4388587-9 (Version None)
Quarter: 2004Q2

REPORT INFORMATION
  Report Type: 
  Country: None (occurrence: None)
  Receive Date: 20040624
  Receipt Date: 20040611
  Transmission Date: 20050107
  Serious: Yes (Other)
  Sender: FDA-Public Use
  Company Number: 2004037879

PATIENT
  Age: 4 Year
  Weight: 16.7 kg

DRUGS (3)
  1. ATARAX [Suspect]
     Indication: PREMEDICATION
     Dosage: ORAL
     Route: 048
     Dates: start: 20040603, end: 20040603
  2. CHLORAL HYDRATE (CHLORAL HYDRATE) [Suspect]
     Indication: PREMEDICATION
     Dosage: ORAL
     Route: 048
     Dates: start: 20040603, end: 20040603
  3. TRICLOFOS SODIUM (TRICLOFOS SODIUM) [Concomitant]

REACTIONS (1)
  - ANAPHYLACTIC REACTION [None]
